FAERS Safety Report 8358649-X (Version None)
Quarter: 2012Q2

REPORT INFORMATION
  Report Type: 
  Country: None (occurrence: None)
  Receive Date: 20120514
  Receipt Date: 20120510
  Transmission Date: 20120825
  Serious: Yes (Other)
  Sender: FDA-Public Use
  Company Number: GB-MERCK-1109GBR00100

PATIENT
  Age: 62 Year
  Sex: Female
  Weight: 62 kg

DRUGS (4)
  1. ALBUTEROL SULFATE [Concomitant]
     Indication: ASTHMA
     Route: 055
     Dates: start: 20070101
  2. ESTRADIOL [Concomitant]
     Indication: HORMONE REPLACEMENT THERAPY
     Route: 065
     Dates: start: 20020101
  3. CICLESONIDE [Concomitant]
     Indication: ASTHMA
     Route: 055
     Dates: start: 20110718
  4. SINGULAIR [Suspect]
     Indication: ASTHMA
     Route: 048
     Dates: start: 20100101, end: 20110915

REACTIONS (6)
  - MUSCULOSKELETAL STIFFNESS [None]
  - ADVERSE EVENT [None]
  - PAIN [None]
  - PAIN IN EXTREMITY [None]
  - ABASIA [None]
  - MUSCULAR WEAKNESS [None]
